FAERS Safety Report 21835481 (Version 1)
Quarter: 2023Q1

REPORT INFORMATION
  Report Type: Report from Study
  Country: US (occurrence: US)
  Receive Date: 20230109
  Receipt Date: 20230109
  Transmission Date: 20230417
  Serious: No
  Sender: FDA-Public Use
  Company Number: US-ABBVIE-4236615

PATIENT
  Sex: Female

DRUGS (1)
  1. HUMIRA [Suspect]
     Active Substance: ADALIMUMAB
     Indication: Hidradenitis
     Dosage: CITRATE FREE
     Route: 058
     Dates: start: 20221020

REACTIONS (7)
  - Dyspnoea [Not Recovered/Not Resolved]
  - Rash papular [Unknown]
  - Temperature intolerance [Unknown]
  - Hidradenitis [Unknown]
  - Rash pruritic [Unknown]
  - Erythema [Unknown]
  - Pain of skin [Unknown]
